FAERS Safety Report 9181534 (Version 1)
Quarter: 2013Q1

REPORT INFORMATION
  Report Type: Spontaneous
  Country: US (occurrence: US)
  Receive Date: 20130322
  Receipt Date: 20130322
  Transmission Date: 20140127
  Serious: Yes (Other)
  Sender: FDA-Public Use
  Company Number: US-ELI_LILLY_AND_COMPANY-US201303005800

PATIENT
  Sex: Male

DRUGS (6)
  1. HUMULIN REGULAR [Suspect]
     Indication: TYPE 2 DIABETES MELLITUS
     Dosage: UNK
     Dates: start: 1994
  2. HUMULIN NPH [Suspect]
     Indication: TYPE 2 DIABETES MELLITUS
     Dosage: 34 U, EACH MORNING
  3. HUMULIN NPH [Suspect]
     Dosage: 34 U, EACH EVENING
  4. HUMALOG LISPRO [Suspect]
     Indication: TYPE 2 DIABETES MELLITUS
     Dosage: 22 U, EACH MORNING
  5. HUMALOG LISPRO [Suspect]
     Dosage: 22 U, EACH EVENING
  6. HUMALOG LISPRO [Suspect]
     Dosage: UNK, PRN

REACTIONS (4)
  - Blindness [Not Recovered/Not Resolved]
  - Macular degeneration [Not Recovered/Not Resolved]
  - Incorrect dose administered [Recovered/Resolved]
  - Incorrect storage of drug [Recovered/Resolved]
